FAERS Safety Report 20642168 (Version 2)
Quarter: 2022Q2

REPORT INFORMATION
  Report Type: Report from Study
  Country: IL (occurrence: IL)
  Receive Date: 20220328
  Receipt Date: 20220401
  Transmission Date: 20220720
  Serious: Yes (Death)
  Sender: FDA-Public Use
  Company Number: IL-NOVARTISPH-NVSC2021IL094141

PATIENT
  Age: 8 Month
  Sex: Female
  Weight: 6.4 kg

DRUGS (3)
  1. ZOLGENSMA [Suspect]
     Active Substance: ONASEMNOGENE ABEPARVOVEC-XIOI
     Indication: Spinal muscular atrophy
     Dosage: UNK, ONCE/SINGLE
     Route: 042
     Dates: start: 20210412
  2. ZOLGENSMA [Suspect]
     Active Substance: ONASEMNOGENE ABEPARVOVEC-XIOI
     Dosage: 2X5.5 ML ONCE/SINGLE
     Route: 042
     Dates: start: 20210412
  3. ZOLGENSMA [Suspect]
     Active Substance: ONASEMNOGENE ABEPARVOVEC-XIOI
     Dosage: 3X8.3ML, ONCE/SINGLE
     Route: 042
     Dates: start: 20210412

REACTIONS (5)
  - Death [Fatal]
  - Pyrexia [Recovered/Resolved]
  - Vomiting [Recovered/Resolved]
  - Vomiting [Recovered/Resolved]
  - Troponin I increased [Unknown]

NARRATIVE: CASE EVENT DATE: 20210416
